FAERS Safety Report 6369591-8 (Version None)
Quarter: 2009Q3

REPORT INFORMATION
  Report Type: 
  Country: None (occurrence: None)
  Receive Date: 20090923
  Receipt Date: 20090910
  Transmission Date: 20100115
  Serious: Yes (Other)
  Sender: FDA-Public Use
  Company Number: PHEH2009US11372

PATIENT
  Sex: Female

DRUGS (1)
  1. ESTROGEN [Suspect]
     Dosage: UNK, UNK
     Route: 062

REACTIONS (2)
  - THERAPEUTIC RESPONSE UNEXPECTED [None]
  - THYROID DISORDER [None]
